FAERS Safety Report 9942405 (Version 2)
Quarter: 2014Q1

REPORT INFORMATION
  Report Type: Spontaneous
  Country: US (occurrence: US)
  Receive Date: 20140303
  Receipt Date: 20140331
  Transmission Date: 20141002
  Serious: No
  Sender: FDA-Public Use
  Company Number: US-PFIZER INC-2014058806

PATIENT
  Age: 82 Year
  Sex: Male

DRUGS (5)
  1. LATANOPROST [Suspect]
     Indication: GLAUCOMA
     Dosage: 1 DROP LEFT EYE QHS
     Route: 047
     Dates: start: 20111116
  2. LATANOPROST [Suspect]
     Dosage: 1 DROP LEFT EYE QHS
     Route: 047
  3. METOPROLOL [Concomitant]
     Indication: HYPERTENSION
     Dosage: 25 MG, QD
     Dates: start: 20111002
  4. PROPAFENONE [Concomitant]
     Indication: ARRHYTHMIA
     Dosage: 325 MG, Q 12
     Dates: start: 20111005
  5. POTASSIUM CHLORIDE [Concomitant]
     Indication: SUPPLEMENTATION THERAPY
     Dosage: 10 MEQ, QD
     Dates: start: 20111005

REACTIONS (2)
  - Foreign body sensation in eyes [Recovered/Resolved]
  - Product quality issue [Unknown]
